FAERS Safety Report 23720229 (Version 1)
Quarter: 2024Q2

REPORT INFORMATION
  Report Type: Spontaneous
  Country: NL (occurrence: NL)
  Receive Date: 20240408
  Receipt Date: 20240408
  Transmission Date: 20240715
  Serious: Yes (Other)
  Sender: FDA-Public Use
  Company Number: NL-009507513-2404NLD001571

PATIENT
  Age: 47 Year
  Sex: Female

DRUGS (1)
  1. TEMOZOLOMIDE [Suspect]
     Active Substance: TEMOZOLOMIDE
     Indication: Glioblastoma
     Dosage: UNK

REACTIONS (12)
  - Upper motor neurone lesion [Unknown]
  - Mood altered [Unknown]
  - Language disorder [Unknown]
  - Sensory loss [Unknown]
  - Gait disturbance [Unknown]
  - Muscular weakness [Unknown]
  - Fine motor skill dysfunction [Unknown]
  - Speech disorder [Unknown]
  - Neck pain [Unknown]
  - Motor dysfunction [Unknown]
  - Hypoaesthesia [Unknown]
  - Oedema [Unknown]
